FAERS Safety Report 7978418-X (Version None)
Quarter: 2011Q4

REPORT INFORMATION
  Report Type: 
  Country: None (occurrence: None)
  Receive Date: 20111214
  Receipt Date: 20111213
  Transmission Date: 20120403
  Serious: Yes (Hospitalization)
  Sender: FDA-Public Use
  Company Number: FR-AMGEN-FRASP2011066190

PATIENT
  Age: 63 Year
  Sex: Female

DRUGS (4)
  1. EPIRUBICIN [Concomitant]
     Indication: BREAST CANCER
     Dosage: UNK
     Dates: start: 20110907
  2. FLUOROURACIL [Concomitant]
     Indication: BREAST CANCER
     Dosage: UNK
     Dates: start: 20110907
  3. NEULASTA [Suspect]
     Indication: CHEMOTHERAPY
     Dosage: 1 DF, ONE TIME DOSE
     Route: 042
     Dates: start: 20111025, end: 20111025
  4. CYCLOPHOSPHAMIDE [Concomitant]
     Indication: BREAST CANCER
     Dosage: UNK
     Dates: start: 20110907

REACTIONS (1)
  - DRUG INEFFECTIVE [None]
